FAERS Safety Report 10163770 (Version 2)
Quarter: 2014Q2

REPORT INFORMATION
  Report Type: Report from Study
  Country: GR (occurrence: GR)
  Receive Date: 20140509
  Receipt Date: 20140509
  Transmission Date: 20141212
  Serious: Yes (Death, Hospitalization)
  Sender: FDA-Public Use
  Company Number: GR-B.I. PHARMACEUTICALS,INC./RIDGEFIELD-2014-BI-08673II

PATIENT
  Age: 61 Year
  Sex: Male
  Weight: 53 kg

DRUGS (8)
  1. BIBW 2992 [Suspect]
     Indication: METASTATIC GASTRIC CANCER
     Dosage: 40 MG
     Route: 048
     Dates: start: 20131016, end: 20140203
  2. CDDP [Concomitant]
     Indication: METASTATIC GASTRIC CANCER
     Dosage: 115 MG
     Route: 042
     Dates: start: 20131014, end: 20140116
  3. 5-FU [Concomitant]
     Indication: METASTATIC GASTRIC CANCER
     Dosage: 1175 MG
     Route: 042
     Dates: start: 20131014, end: 20140119
  4. LANTUS INSULIN [Concomitant]
     Indication: DIABETES MELLITUS
     Route: 058
     Dates: start: 1999, end: 20140205
  5. NOVORAPID INSULIN [Concomitant]
     Indication: DIABETES MELLITUS
     Route: 058
     Dates: start: 2009, end: 20140205
  6. XYLOCAINE [Concomitant]
     Indication: MUCOSAL INFLAMMATION
     Dosage: ROUTE: ORAL SOLUTION
     Route: 050
     Dates: start: 20131022, end: 20140205
  7. MYCOSTATIN [Concomitant]
     Indication: MUCOSAL INFLAMMATION
     Dosage: ROUTE: ORAL SOL
     Route: 050
     Dates: start: 20131022, end: 20140205
  8. PEPTONORM [Concomitant]
     Indication: MUCOSAL INFLAMMATION
     Dosage: ROUT: PER OS
     Route: 050
     Dates: start: 20131022, end: 20140205

REACTIONS (6)
  - Death [Fatal]
  - Diarrhoea [Recovered/Resolved]
  - Periorbital oedema [Recovered/Resolved]
  - Face oedema [Not Recovered/Not Resolved]
  - Oedema peripheral [Not Recovered/Not Resolved]
  - Localised oedema [Not Recovered/Not Resolved]
